FAERS Safety Report 8800156 (Version 1)
Quarter: 2012Q4

REPORT INFORMATION
  Report Type: 
  Country: US (occurrence: US)
  Receive Date: 20120921
  Receipt Date: 20120921
  Transmission Date: 20130627
  Serious: No
  Sender: FDA-Public Use
  Company Number: US-009507513-1208USA008209

PATIENT
  Sex: Female

DRUGS (3)
  1. VICTRELIS [Suspect]
     Indication: HEPATITIS C
     Dosage: UNK
     Dates: start: 20120427
  2. REBETOL [Suspect]
     Indication: HEPATITIS C
     Dosage: 1200 mg, UNK
     Dates: start: 20120406
  3. PEGINTERFERON ALFA-2A [Suspect]
     Indication: HEPATITIS C
     Dosage: 180 Microgram, qw
     Dates: start: 20120406

REACTIONS (3)
  - Ankle fracture [Unknown]
  - Fall [Unknown]
  - Decreased appetite [Unknown]
